FAERS Safety Report 10225937 (Version 1)
Quarter: 2014Q2

REPORT INFORMATION
  Report Type: Spontaneous
  Country: IT (occurrence: IT)
  Receive Date: 20140609
  Receipt Date: 20140609
  Transmission Date: 20141212
  Serious: Yes (Hospitalization)
  Sender: FDA-Public Use
  Company Number: IT-WATSON-2013-25427

PATIENT
  Age: 35 Year
  Sex: Female

DRUGS (2)
  1. HALCION PFIZER ITALIA SPA [Suspect]
     Indication: ANXIETY
     Dosage: 750 ?G, TOTAL
     Route: 048
     Dates: start: 20130805, end: 20130805
  2. LORAZEPAM (UNKNOWN) [Suspect]
     Indication: ANXIETY
     Dosage: 3 MG, TOTAL
     Route: 048
     Dates: start: 20130804, end: 20130804

REACTIONS (3)
  - Nausea [Recovering/Resolving]
  - Vomiting [Recovering/Resolving]
  - Intentional self-injury [Recovering/Resolving]
